FAERS Safety Report 9375960 (Version 1)
Quarter: 2013Q2

REPORT INFORMATION
  Report Type: Spontaneous
  Country: US (occurrence: None)
  Receive Date: 20130628
  Receipt Date: 20130628
  Transmission Date: 20140414
  Serious: Yes (Death, Hospitalization)
  Sender: FDA-Public Use
  Company Number: None

PATIENT
  Age: 89 Year
  Sex: Female
  Weight: 45.36 kg

DRUGS (2)
  1. FENTANYL PATCH [Suspect]
     Indication: PROCEDURAL PAIN
  2. FENTANYL PATCH [Suspect]
     Indication: VERTEBROPLASTY

REACTIONS (13)
  - Overdose [None]
  - Drug prescribing error [None]
  - Drug prescribing error [None]
  - Incorrect dose administered [None]
  - Depressed level of consciousness [None]
  - Aspiration [None]
  - Dysphagia [None]
  - Vomiting [None]
  - Fall [None]
  - Incontinence [None]
  - Memory impairment [None]
  - Depression [None]
  - Hypersomnia [None]
